FAERS Safety Report 5606083-5 (Version None)
Quarter: 2008Q1

REPORT INFORMATION
  Report Type: 
  Country: None (occurrence: None)
  Receive Date: 20080123
  Receipt Date: 20080114
  Transmission Date: 20080703
  Serious: Yes (Hospitalization)
  Sender: FDA-Public Use
  Company Number: 2008-169845-NL

PATIENT
  Age: 38 Year
  Sex: Female

DRUGS (2)
  1. MIRTAZAPINE [Suspect]
     Indication: DEPRESSION
     Dosage: 15 MG /30 MG ORAL
     Route: 048
     Dates: start: 20071012, end: 20071211
  2. OLANZAPINE [Suspect]
     Indication: PSYCHOTIC DISORDER
     Dosage: 2.5 MG/10 MG DF ORAL
     Route: 048
     Dates: start: 20071012, end: 20071206

REACTIONS (4)
  - ADVERSE DRUG REACTION [None]
  - AMENORRHOEA [None]
  - NEPHROTIC SYNDROME [None]
  - RENAL IMPAIRMENT [None]
